FAERS Safety Report 24401265 (Version 4)
Quarter: 2024Q4

REPORT INFORMATION
  Report Type: Spontaneous
  Country: JP (occurrence: JP)
  Receive Date: 20241007
  Receipt Date: 20241226
  Transmission Date: 20250114
  Serious: Yes (Death, Disabling, Other)
  Sender: ASTELLAS
  Company Number: JP-ASTELLAS-2024-AER-010333

PATIENT
  Age: 80 Year
  Sex: Male
  Weight: 60 kg

DRUGS (15)
  1. XOSPATA [Suspect]
     Active Substance: GILTERITINIB
     Indication: Acute myeloid leukaemia refractory
     Route: 048
     Dates: start: 20240926, end: 20240928
  2. Magnesium oxide tablet 330 mg [Concomitant]
     Indication: Constipation
     Route: 048
     Dates: start: 20240821, end: 20240918
  3. Nesina tablet 25 mg [Concomitant]
     Indication: Type 2 diabetes mellitus
     Route: 048
     Dates: start: 20240821, end: 20240929
  4. LANSOPRAZOLE [Concomitant]
     Active Substance: LANSOPRAZOLE
     Indication: Gastritis
     Route: 048
     Dates: start: 20240821, end: 20240929
  5. REBAMIPIDE [Concomitant]
     Active Substance: REBAMIPIDE
     Indication: Gastritis
     Route: 048
     Dates: start: 20240821, end: 20240929
  6. Itraconazole 1 % solution [Concomitant]
     Indication: Febrile neutropenia
     Route: 048
     Dates: start: 20240821, end: 20240929
  7. Meropenem vial 0.5 g [Concomitant]
     Indication: Febrile neutropenia
     Route: 042
     Dates: start: 20240821, end: 20240904
  8. Meropenem vial 0.5 g [Concomitant]
     Route: 042
     Dates: start: 20240909, end: 20240922
  9. Vancomycin vial 0.5 g [Concomitant]
     Indication: Infection prophylaxis
     Dosage: DAILY DOSE: 1.0-2.0
     Route: 042
     Dates: start: 20240910, end: 20240927
  10. Vancomycin vial 0.5 g [Concomitant]
     Indication: Pneumonia
  11. Vancomycin vial 0.5 g [Concomitant]
     Indication: Febrile neutropenia
  12. Hydrea capsule 500 mg [Concomitant]
     Indication: Acute myeloid leukaemia
     Route: 048
     Dates: start: 20240912, end: 20240917
  13. Hydrea capsule 500 mg [Concomitant]
     Route: 048
     Dates: start: 20240919, end: 20240925
  14. Hydrea capsule 500 mg [Concomitant]
     Route: 048
     Dates: start: 20240926, end: 20240929
  15. Medicon tablet 15 mg [Concomitant]
     Indication: Bronchitis
     Route: 048
     Dates: start: 20240912, end: 20240925

REACTIONS (6)
  - Respiratory failure [Fatal]
  - Multiple organ dysfunction syndrome [Fatal]
  - Pulmonary haemorrhage [Fatal]
  - Tumour lysis syndrome [Fatal]
  - Haemoptysis [Unknown]
  - Pulmonary alveolar haemorrhage [Unknown]

NARRATIVE: CASE EVENT DATE: 20240928
